FAERS Safety Report 4674677-X (Version None)
Quarter: 2005Q2

REPORT INFORMATION
  Report Type: 
  Country: None (occurrence: None)
  Receive Date: 20050526
  Receipt Date: 20050517
  Transmission Date: 20051028
  Serious: Yes (Other)
  Sender: FDA-Public Use
  Company Number: SK-GLAXOSMITHKLINE-B0382239A

PATIENT
  Age: 62 Year
  Sex: Male
  Weight: 77 kg

DRUGS (4)
  1. REQUIP [Suspect]
     Indication: PARKINSONISM
     Dosage: 5MG THREE TIMES PER DAY
     Route: 048
     Dates: start: 20031201, end: 20050419
  2. MADOPAR [Concomitant]
     Indication: PARKINSONISM
     Dosage: 125MG FIVE TIMES PER DAY
     Route: 048
     Dates: start: 19940101
  3. AMANTADINE HCL [Concomitant]
     Indication: PARKINSONISM
     Dosage: 50MG FIVE TIMES PER DAY
     Route: 048
     Dates: start: 19940101
  4. PARLODEL [Concomitant]
     Indication: PARKINSONISM
     Dosage: 12.5MG PER DAY
     Route: 048
     Dates: start: 20040412

REACTIONS (6)
  - BLOOD BILIRUBIN ABNORMAL [None]
  - CHROMATURIA [None]
  - HEPATIC ENZYME ABNORMAL [None]
  - HEPATIC LESION [None]
  - JAUNDICE [None]
  - MOVEMENT DISORDER [None]
